FAERS Safety Report 5951434-5 (Version None)
Quarter: 2008Q4

REPORT INFORMATION
  Report Type: 
  Country: None (occurrence: None)
  Receive Date: 20081113
  Receipt Date: 20081106
  Transmission Date: 20090506
  Serious: Yes (Hospitalization, Other)
  Sender: FDA-Public Use
  Company Number: GB-ROCHE-596050

PATIENT
  Sex: Female
  Weight: 122 kg

DRUGS (2)
  1. XENICAL [Suspect]
     Indication: OBESITY
     Route: 048
     Dates: start: 20070601, end: 20070701
  2. XENICAL [Suspect]
     Route: 048
     Dates: start: 20081006

REACTIONS (2)
  - CHOLELITHIASIS [None]
  - PANCREATITIS [None]
